FAERS Safety Report 10143342 (Version 1)
Quarter: 2014Q2

REPORT INFORMATION
  Report Type: Spontaneous
  Country: US (occurrence: None)
  Receive Date: 20140429
  Receipt Date: 20140429
  Transmission Date: 20141212
  Serious: No
  Sender: FDA-Public Use
  Company Number: None

PATIENT
  Age: 70 Year
  Sex: Female

DRUGS (15)
  1. FORTEO 600 MCG LILLY [Suspect]
     Dosage: 20 MCQ DAILY SUB Q
     Route: 058
     Dates: start: 20140214
  2. PAXIL [Concomitant]
  3. AMBIEN [Concomitant]
  4. ZOCOR [Concomitant]
  5. ADVAIR [Concomitant]
  6. NITROGLYCERIN [Concomitant]
  7. DIOVAN [Concomitant]
  8. PRILOSEC [Concomitant]
  9. SPIRIVA [Concomitant]
  10. TAMBOCOR [Concomitant]
  11. PROAIR [Concomitant]
  12. XANAX [Concomitant]
  13. CALCIUM [Concomitant]
  14. CENTRUM [Concomitant]
  15. AMOXIL [Concomitant]

REACTIONS (2)
  - Drug dose omission [None]
  - Infection [None]
